FAERS Safety Report 7608206-5 (Version None)
Quarter: 2011Q3

REPORT INFORMATION
  Report Type: 
  Country: None (occurrence: None)
  Receive Date: 20110714
  Receipt Date: 20110630
  Transmission Date: 20111222
  Serious: Yes (Hospitalization, Other)
  Sender: FDA-Public Use
  Company Number: US-ELI_LILLY_AND_COMPANY-US201105001790

PATIENT
  Sex: Female

DRUGS (32)
  1. VITAMIN D [Concomitant]
  2. VITAMIN B COMPLEX CAP [Concomitant]
  3. TOPAMAX [Concomitant]
  4. PREMARIN [Concomitant]
  5. LISINOPRIL [Concomitant]
  6. RITALIN [Concomitant]
  7. SINGULAIR [Concomitant]
  8. MULTI-VITAMIN [Concomitant]
  9. ALBUTEROL SULFATE AUTOHALER [Concomitant]
  10. DIAZEPAM [Concomitant]
  11. SKELAXIN [Concomitant]
  12. FORTEO [Suspect]
     Dosage: 20 UG, QD
     Route: 065
  13. ZYRTEC [Concomitant]
  14. HYDROCORTISONE [Concomitant]
  15. LEVOTHYROXINE [Concomitant]
  16. WARFARIN SODIUM [Concomitant]
  17. FORTEO [Suspect]
     Indication: OSTEOPOROSIS
     Dosage: 20 UG, QD
     Route: 065
     Dates: start: 20110401
  18. FORTEO [Suspect]
     Dosage: 20 UG, QOD
     Route: 065
     Dates: start: 20110630
  19. PRILOSEC [Concomitant]
  20. LACTASE [Concomitant]
  21. MS CONTIN [Concomitant]
  22. PAROXETINE HCL [Concomitant]
  23. OXYGEN [Concomitant]
  24. CALCIUM CARBONATE [Concomitant]
  25. VITAMIN B-12 [Concomitant]
     Route: 030
  26. FLUNISOLIDE [Concomitant]
  27. NEURONTIN [Concomitant]
  28. DICYCLOMINE [Concomitant]
  29. CLIMARA [Concomitant]
  30. FLOVENT [Concomitant]
  31. ACIDOPHILUS [Concomitant]
  32. CHOLESTYRAMINE [Concomitant]

REACTIONS (16)
  - FLANK PAIN [None]
  - INTESTINAL OBSTRUCTION [None]
  - NECK PAIN [None]
  - CHEST PAIN [None]
  - DIARRHOEA [None]
  - ABDOMINAL PAIN [None]
  - HERNIA OBSTRUCTIVE [None]
  - NAUSEA [None]
  - BACK PAIN [None]
  - DRUG PRESCRIBING ERROR [None]
  - PAIN IN EXTREMITY [None]
  - MOVEMENT DISORDER [None]
  - INTESTINAL ISCHAEMIA [None]
  - SINUS DISORDER [None]
  - MUSCULAR WEAKNESS [None]
  - FEELING ABNORMAL [None]
